FAERS Safety Report 4359807-1 (Version None)
Quarter: 2004Q2

REPORT INFORMATION
  Report Type: 
  Country: None (occurrence: None)
  Receive Date: 20040518
  Receipt Date: 20040507
  Transmission Date: 20050107
  Serious: Yes (Other)
  Sender: FDA-Public Use
  Company Number: US-ROCHE-366954

PATIENT
  Age: 59 Year
  Sex: Female

DRUGS (5)
  1. PEG-INTERFERON ALFA 2A (RO 25-8310) [Suspect]
     Indication: HEPATITIS C
     Route: 058
     Dates: start: 20031202
  2. RIBAVIRIN [Suspect]
     Indication: HEPATITIS C
     Route: 048
     Dates: start: 20031202
  3. RIBAVIRIN [Suspect]
     Route: 048
     Dates: start: 20040126
  4. RIBAVIRIN [Suspect]
     Route: 048
     Dates: start: 20040222
  5. BLINDED POLYENYLPHOSPHATIDYLCHOLINE [Suspect]
     Indication: HEPATITIS C
     Route: 065

REACTIONS (1)
  - FACIAL PALSY [None]
